FAERS Safety Report 18192011 (Version 1)
Quarter: 2020Q3

REPORT INFORMATION
  Report Type: Spontaneous
  Country: FR (occurrence: FR)
  Receive Date: 20200825
  Receipt Date: 20200825
  Transmission Date: 20201103
  Serious: Yes (Other)
  Sender: FDA-Public Use
  Company Number: NVSC2020FR230747

PATIENT
  Age: 56 Year
  Sex: Female

DRUGS (2)
  1. DEXAFREE [Suspect]
     Active Substance: DEXAMETHASONE SODIUM PHOSPHATE
     Indication: CORNEAL OEDEMA
     Dosage: 4 DRP (COLLYRE EN SOLUTION)
     Route: 047
     Dates: start: 201810, end: 20190821
  2. TOBRADEX [Suspect]
     Active Substance: DEXAMETHASONE\TOBRAMYCIN
     Indication: PRODUCT USED FOR UNKNOWN INDICATION
     Dosage: 2 DRP (COLLYRE EN SOLUTION)([DRP] (DROP (1/12 MILLILITRE))
     Route: 047
     Dates: start: 201801, end: 20190919

REACTIONS (3)
  - Vision blurred [Recovered/Resolved with Sequelae]
  - Corneal oedema [Recovered/Resolved]
  - Corneal deposits [Recovered/Resolved]

NARRATIVE: CASE EVENT DATE: 20181010
